FAERS Safety Report 5395126-2 (Version None)
Quarter: 2007Q3

REPORT INFORMATION
  Report Type: 
  Country: None (occurrence: None)
  Receive Date: 20070724
  Receipt Date: 20070718
  Transmission Date: 20080115
  Serious: Yes (Other)
  Sender: FDA-Public Use
  Company Number: MX-JNJFOC-20070704632

PATIENT
  Age: 48 Year
  Sex: Male
  Weight: 71 kg

DRUGS (1)
  1. AMOEBRIZ [Suspect]
     Indication: PARASITIC INFECTION PROPHYLAXIS
     Route: 065

REACTIONS (7)
  - ABDOMINAL PAIN [None]
  - AGEUSIA [None]
  - DIARRHOEA [None]
  - FLATULENCE [None]
  - HEPATIC FUNCTION ABNORMAL [None]
  - HYPERHIDROSIS [None]
  - PYREXIA [None]
